FAERS Safety Report 13425334 (Version 1)
Quarter: 2017Q2

REPORT INFORMATION
  Report Type: Other
  Country: CN (occurrence: CN)
  Receive Date: 20170411
  Receipt Date: 20170411
  Transmission Date: 20170830
  Serious: Yes (Other)
  Sender: FDA-Public Use
  Company Number: CN-ORCHID HEALTHCARE-1065254

PATIENT
  Age: 29 Year
  Sex: Male

DRUGS (1)
  1. TERBINAFINE HYDROCHLORIDE. [Suspect]
     Active Substance: TERBINAFINE HYDROCHLORIDE
     Indication: CANDIDA INFECTION
     Route: 065
     Dates: start: 20131107, end: 20131207

REACTIONS (1)
  - Drug resistance [Recovering/Resolving]
